FAERS Safety Report 5453286-9 (Version None)
Quarter: 2007Q3

REPORT INFORMATION
  Report Type: 
  Country: None (occurrence: None)
  Receive Date: 20070914
  Receipt Date: 20070910
  Transmission Date: 20080115
  Serious: Yes (Life-Threatening, Hospitalization, Disabling)
  Sender: FDA-Public Use
  Company Number: DK-PFIZER INC-2007075592

PATIENT
  Sex: Male
  Weight: 80 kg

DRUGS (2)
  1. ZOLOFT [Suspect]
     Indication: DEPRESSION
     Route: 048
     Dates: start: 20010926, end: 20070608
  2. ANTIHYPERTENSIVES [Concomitant]

REACTIONS (1)
  - PANCREATIC ABSCESS [None]
